FAERS Safety Report 6030343-X (Version None)
Quarter: 2009Q1

REPORT INFORMATION
  Report Type: 
  Country: None (occurrence: None)
  Receive Date: 20090106
  Receipt Date: 20090106
  Transmission Date: 20090719
  Serious: Yes (Other)
  Sender: FDA-Public Use
  Company Number: None

PATIENT
  Age: 49 Year
  Sex: Male
  Weight: 99.7913 kg

DRUGS (1)
  1. LIPITOR [Suspect]
     Indication: BLOOD CHOLESTEROL
     Dosage: 1  DAAY PO
     Route: 048
     Dates: start: 19990101, end: 20081230

REACTIONS (3)
  - FATIGUE [None]
  - MYALGIA [None]
  - PAIN IN EXTREMITY [None]
